FAERS Safety Report 25209764 (Version 3)
Quarter: 2025Q4

REPORT INFORMATION
  Report Type: Report from Study
  Country: CO (occurrence: CO)
  Receive Date: 20250417
  Receipt Date: 20251117
  Transmission Date: 20260118
  Serious: Yes (Hospitalization)
  Sender: BIOGEN
  Company Number: CO-BIOGEN-2025BI01300776

PATIENT
  Age: 35 Year
  Sex: Female
  Weight: 65 kg

DRUGS (2)
  1. TYSABRI [Suspect]
     Active Substance: NATALIZUMAB
     Indication: Multiple sclerosis
     Dates: start: 20230302, end: 20250626
  2. TYSABRI [Suspect]
     Active Substance: NATALIZUMAB
     Dates: start: 20250626

REACTIONS (7)
  - Seizure [Recovered/Resolved]
  - Discouragement [Recovered/Resolved]
  - Muscular weakness [Recovered/Resolved]
  - Prescribed underdose [Not Recovered/Not Resolved]
  - Headache [Recovered/Resolved]
  - Malaise [Unknown]
  - Aphasia [Unknown]

NARRATIVE: CASE EVENT DATE: 20240101
